FAERS Safety Report 11937101 (Version 1)
Quarter: 2016Q1

REPORT INFORMATION
  Report Type: Spontaneous
  Country: US (occurrence: US)
  Receive Date: 20160121
  Receipt Date: 20160121
  Transmission Date: 20160526
  Serious: Yes (Hospitalization, Other)
  Sender: FDA-Public Use
  Company Number: US-DSJP-DSU-2015-120488

PATIENT

DRUGS (2)
  1. BENICAR [Suspect]
     Active Substance: OLMESARTAN MEDOXOMIL
     Indication: HYPERTENSION
     Dosage: 20 MG, UNK
     Route: 048
     Dates: start: 2008
  2. BENICAR HCT [Suspect]
     Active Substance: HYDROCHLOROTHIAZIDE\OLMESARTAN MEDOXOMIL
     Indication: PRODUCT USED FOR UNKNOWN INDICATION
     Dosage: 20/12.5 MG ONCE PER DAY
     Dates: start: 2005, end: 2010

REACTIONS (12)
  - Renal failure [Unknown]
  - Intestinal obstruction [Unknown]
  - Anaemia [Unknown]
  - Hiatus hernia [Unknown]
  - Dizziness [Unknown]
  - Irritable bowel syndrome [Unknown]
  - Lactose intolerance [Unknown]
  - Diverticulitis [Unknown]
  - Oesophagitis [Unknown]
  - Malabsorption [Unknown]
  - Haemorrhoids [Unknown]
  - Diverticulum [Unknown]

NARRATIVE: CASE EVENT DATE: 2008
